FAERS Safety Report 8367728-2 (Version None)
Quarter: 2012Q2

REPORT INFORMATION
  Report Type: 
  Country: None (occurrence: None)
  Receive Date: 20120517
  Receipt Date: 20120420
  Transmission Date: 20120825
  Serious: Yes (Other)
  Sender: FDA-Public Use
  Company Number: US-GLAXOSMITHKLINE-A0975757A

PATIENT
  Sex: Male

DRUGS (1)
  1. WELLBUTRIN [Suspect]
     Indication: PAIN
     Route: 048
     Dates: start: 20080101

REACTIONS (5)
  - PANIC ATTACK [None]
  - DEPRESSION [None]
  - ADVERSE DRUG REACTION [None]
  - TREATMENT NONCOMPLIANCE [None]
  - DEPENDENCE [None]
